FAERS Safety Report 25451349 (Version 2)
Quarter: 2025Q4

REPORT INFORMATION
  Report Type: Spontaneous
  Country: JP (occurrence: JP)
  Receive Date: 20250618
  Receipt Date: 20251022
  Transmission Date: 20260118
  Serious: Yes (Hospitalization)
  Sender: EISAI
  Company Number: JP-Eisai-202503168_LEN-EC_P_1

PATIENT
  Age: 77 Year
  Sex: Female

DRUGS (2)
  1. LENVATINIB [Suspect]
     Active Substance: LENVATINIB
     Indication: Endometrial cancer
     Dosage: DOSE AND FREQUENCY UNKNOWN
     Route: 048
  2. KEYTRUDA [Suspect]
     Active Substance: PEMBROLIZUMAB
     Indication: Endometrial cancer
     Dosage: DOSE UNKNOWN
     Route: 042

REACTIONS (1)
  - Immune-mediated myocarditis [Recovered/Resolved]
